FAERS Safety Report 4653787-7 (Version None)
Quarter: 2005Q2

REPORT INFORMATION
  Report Type: 
  Country: None (occurrence: None)
  Receive Date: 20050504
  Receipt Date: 20050105
  Transmission Date: 20051028
  Serious: Yes (Hospitalization)
  Sender: FDA-Public Use
  Company Number: PAR_0017_2005

PATIENT
  Age: 51 Year
  Sex: Male

DRUGS (9)
  1. VERAPAMIL [Suspect]
     Dosage: DF
  2. FUROSEMIDE [Suspect]
     Dosage: DF
     Dates: end: 20040914
  3. FUROSEMIDE [Suspect]
     Dosage: DF
     Dates: start: 20040914, end: 20041029
  4. MICARDIS [Suspect]
     Dosage: DF
     Dates: start: 20040914, end: 20041031
  5. COZAAR [Suspect]
     Dosage: DF
     Dates: start: 20040914, end: 20041031
  6. METAZOLONE [Suspect]
     Dosage: DF
  7. INSULIN [Suspect]
  8. ROSUVASTATIN [Concomitant]
  9. NICOTINIC ACID [Concomitant]

REACTIONS (10)
  - ASTHENIA [None]
  - BLOOD CREATINE PHOSPHOKINASE INCREASED [None]
  - BLOOD GLUCOSE INCREASED [None]
  - BLOOD SODIUM DECREASED [None]
  - DEHYDRATION [None]
  - FATIGUE [None]
  - MYALGIA [None]
  - OEDEMA PERIPHERAL [None]
  - ORTHOPNOEA [None]
  - RENAL FAILURE ACUTE [None]
